FAERS Safety Report 5431610-0 (Version None)
Quarter: 2007Q3

REPORT INFORMATION
  Report Type: 
  Country: None (occurrence: None)
  Receive Date: 20070830
  Receipt Date: 20070817
  Transmission Date: 20080115
  Serious: No
  Sender: FDA-Public Use
  Company Number: US-ELI_LILLY_AND_COMPANY-US200708003774

PATIENT
  Age: 65 Year
  Sex: Female

DRUGS (4)
  1. CYMBALTA [Suspect]
     Indication: DEPRESSION
     Dosage: 60 MG, DAILY (1/D)
     Route: 048
     Dates: end: 20070101
  2. PROPRANOLOL [Concomitant]
  3. OMEPRAZOLE [Concomitant]
  4. MULTIVITAMIN [Concomitant]

REACTIONS (2)
  - DEPRESSION [None]
  - HEPATIC ENZYME INCREASED [None]
